FAERS Safety Report 25279546 (Version 2)
Quarter: 2025Q2

REPORT INFORMATION
  Report Type: Spontaneous
  Country: CA (occurrence: CA)
  Receive Date: 20250507
  Receipt Date: 20250513
  Transmission Date: 20250717
  Serious: Yes (Hospitalization, Other)
  Sender: MYLAN
  Company Number: CA-MYLANLABS-2025M1038420

PATIENT
  Age: 66 Year
  Sex: Male

DRUGS (5)
  1. VERAPAMIL [Interacting]
     Active Substance: VERAPAMIL HYDROCHLORIDE
     Indication: Product used for unknown indication
     Dosage: 360 MILLIGRAM, QD (1 EVERY 1 DAYS)
  2. VERAPAMIL [Interacting]
     Active Substance: VERAPAMIL HYDROCHLORIDE
     Dosage: 240 MILLIGRAM, QD (1 EVERY 1 DAYS)
  3. CAMZYOS [Interacting]
     Active Substance: MAVACAMTEN
     Indication: Hypertrophic cardiomyopathy
     Dosage: 5 MILLIGRAM, QD (1 EVERY 1 DAYS)
  4. ASPIRIN [Concomitant]
     Active Substance: ASPIRIN
     Indication: Product used for unknown indication
     Dosage: UNK, QD (1 EVERY 1 DAYS)
  5. CIALIS [Concomitant]
     Active Substance: TADALAFIL
     Indication: Product used for unknown indication

REACTIONS (9)
  - Acute myocardial infarction [Unknown]
  - Chest pain [Unknown]
  - Left ventricular dysfunction [Unknown]
  - Myopericarditis [Unknown]
  - Nasopharyngitis [Unknown]
  - Pain [Unknown]
  - Transvalvular pressure gradient increased [Unknown]
  - Arthralgia [Unknown]
  - Labelled drug-drug interaction medication error [Unknown]
